FAERS Safety Report 9969793 (Version 1)
Quarter: 2014Q1

REPORT INFORMATION
  Report Type: Spontaneous
  Country: US (occurrence: None)
  Receive Date: 20140304
  Receipt Date: 20140304
  Transmission Date: 20141002
  Serious: Yes (Disabling)
  Sender: FDA-Public Use
  Company Number: None

PATIENT
  Age: 76 Year
  Sex: Male
  Weight: 73.94 kg

DRUGS (5)
  1. LINZESS [Suspect]
     Indication: CONSTIPATION
     Route: 048
     Dates: start: 20131110, end: 20131117
  2. NEXIUM [Concomitant]
  3. FLOVENT [Concomitant]
  4. LAMICTAL [Concomitant]
  5. TYLENOL [Concomitant]

REACTIONS (1)
  - Abdominal pain [None]
